FAERS Safety Report 7205562-7 (Version None)
Quarter: 2010Q4

REPORT INFORMATION
  Report Type: 
  Country: None (occurrence: None)
  Receive Date: 20101231
  Receipt Date: 20101228
  Transmission Date: 20110411
  Serious: Yes (Hospitalization)
  Sender: FDA-Public Use
  Company Number: JP-BRISTOL-MYERS SQUIBB COMPANY-15376221

PATIENT
  Age: 45 Year
  Sex: Male
  Weight: 58 kg

DRUGS (3)
  1. CETUXIMAB [Suspect]
     Indication: GASTROOESOPHAGEAL CANCER
     Dosage: 5MG/ML INTRAVENOUS INFUSION.TOTAL NO OF INFUSION RECEIVED-11; RECENT INF ON 28OCT2010.
     Route: 042
     Dates: start: 20100811, end: 20101028
  2. CISPLATIN [Suspect]
     Indication: GASTROOESOPHAGEAL CANCER
     Dosage: ON DAY  1 OF CYCLE;RECENT INF ON 28OCT2010.
     Route: 042
     Dates: start: 20100811, end: 20101028
  3. XELODA [Suspect]
     Indication: GASTROOESOPHAGEAL CANCER
     Dosage: RECENT INF ON 01NOV2010; ON DAY 1-15.
     Route: 048
     Dates: start: 20100811, end: 20101101

REACTIONS (1)
  - PULMONARY ARTERY THROMBOSIS [None]
